FAERS Safety Report 6012374-9 (Version None)
Quarter: 2008Q4

REPORT INFORMATION
  Report Type: 
  Country: None (occurrence: None)
  Receive Date: 20081218
  Receipt Date: 20080922
  Transmission Date: 20090506
  Serious: No
  Sender: FDA-Public Use
  Company Number: US-ASTRAZENECA-2008UW19847

PATIENT
  Age: 58 Year
  Sex: Female
  Weight: 90.3 kg

DRUGS (6)
  1. SYMBICORT [Suspect]
     Indication: MULTIPLE ALLERGIES
     Dosage: SYMBICORT 160/4.5, 120 DOSES FOR 2 MONTHS
     Route: 055
     Dates: start: 20080701
  2. PRAVASTATIN [Concomitant]
  3. HYDROCHLOROTHIAZIDE [Concomitant]
  4. TOPAMAX [Concomitant]
  5. ZIGARED [Concomitant]
  6. RISCON [Concomitant]

REACTIONS (1)
  - WEIGHT INCREASED [None]
